FAERS Safety Report 11074515 (Version 1)
Quarter: 2015Q2

REPORT INFORMATION
  Report Type: Spontaneous
  Country: US (occurrence: None)
  Receive Date: 20150428
  Receipt Date: 20150428
  Transmission Date: 20150821
  Serious: Yes (Other)
  Sender: FDA-Public Use
  Company Number: None

PATIENT
  Age: 69 Year
  Sex: Female
  Weight: 68.04 kg

DRUGS (12)
  1. MUCINEX CONGESTION AND COUGH MAXIMUM STRENGTH [Suspect]
     Active Substance: DEXTROMETHORPHAN HYDROBROMIDE\GUAIFENESIN\PHENYLEPHRINE HYDROCHLORIDE
     Indication: COUGH
     Dates: start: 20150411, end: 20150422
  2. LEVOTHYROXINE [Concomitant]
     Active Substance: LEVOTHYROXINE
  3. ACIPHEX [Concomitant]
     Active Substance: RABEPRAZOLE SODIUM
  4. MUCINEX CONGESTION AND COUGH MAXIMUM STRENGTH [Suspect]
     Active Substance: DEXTROMETHORPHAN HYDROBROMIDE\GUAIFENESIN\PHENYLEPHRINE HYDROCHLORIDE
     Indication: SINUS CONGESTION
     Dates: start: 20150411, end: 20150422
  5. VIT. D [Concomitant]
  6. CULTUREL [Concomitant]
  7. DILTIAZEM [Concomitant]
     Active Substance: DILTIAZEM
  8. BENAZEPRIL [Concomitant]
     Active Substance: BENAZEPRIL\BENAZEPRIL HYDROCHLORIDE
  9. MIRALAX [Concomitant]
     Active Substance: POLYETHYLENE GLYCOL 3350
  10. MULTIVITAMIN [Concomitant]
     Active Substance: VITAMINS
  11. VAGIFEM [Concomitant]
     Active Substance: ESTRADIOL
  12. CALCIUM [Concomitant]
     Active Substance: CALCIUM

REACTIONS (6)
  - Pyrexia [None]
  - Heart rate irregular [None]
  - Blood pressure increased [None]
  - Cough [None]
  - Product quality issue [None]
  - Decreased activity [None]

NARRATIVE: CASE EVENT DATE: 20150422
